APPROVED DRUG PRODUCT: DESMOPRESSIN ACETATE
Active Ingredient: DESMOPRESSIN ACETATE
Strength: 0.2MG
Dosage Form/Route: TABLET;ORAL
Application: A077122 | Product #002
Applicant: IMPAX LABORATORIES INC
Approved: Jan 25, 2006 | RLD: No | RS: No | Type: DISCN